FAERS Safety Report 19080656 (Version 2)
Quarter: 2021Q2

REPORT INFORMATION
  Report Type: Spontaneous
  Country: US (occurrence: US)
  Receive Date: 20210331
  Receipt Date: 20210525
  Transmission Date: 20210717
  Serious: Yes (Death, Other)
  Sender: FDA-Public Use
  Company Number: US-ALXN-A202103978

PATIENT
  Age: 8 Year
  Sex: Male

DRUGS (7)
  1. TMZ [Concomitant]
     Active Substance: TEMOZOLOMIDE
     Indication: THROMBOTIC MICROANGIOPATHY
     Dosage: 100 MG/M2, UNK
     Route: 065
  2. SOLIRIS [Suspect]
     Active Substance: ECULIZUMAB
     Indication: OFF LABEL USE
     Dosage: 600 MG, UNK
     Route: 065
  3. GM?CSF [Concomitant]
     Active Substance: GRANULOCYTE-MACROPHAGE COLONY-STIMULATING FACTOR
     Indication: THROMBOTIC MICROANGIOPATHY
     Dosage: 250 ?G/M2, UNK
     Route: 065
  4. SOLIRIS [Suspect]
     Active Substance: ECULIZUMAB
     Indication: THROMBOTIC MICROANGIOPATHY
     Dosage: UNK
     Route: 065
  5. DINUTUXIMAB [Concomitant]
     Active Substance: DINUTUXIMAB
     Indication: THROMBOTIC MICROANGIOPATHY
     Dosage: 17.5 MG/M2, UNK
     Route: 065
  6. CEFIXIME. [Concomitant]
     Active Substance: CEFIXIME
     Indication: PROPHYLAXIS AGAINST DIARRHOEA
     Dosage: 4 MG/KG, QD
     Route: 065
  7. IRINOTECAN [Concomitant]
     Active Substance: IRINOTECAN
     Indication: THROMBOTIC MICROANGIOPATHY
     Dosage: 50 MG/M2, UNK
     Route: 065

REACTIONS (6)
  - Disease progression [Fatal]
  - Clostridium difficile colitis [Unknown]
  - Off label use [Unknown]
  - Metastases to bone [Unknown]
  - Disease recurrence [Unknown]
  - Pyrexia [Unknown]
